FAERS Safety Report 23572391 (Version 2)
Quarter: 2024Q1

REPORT INFORMATION
  Report Type: Spontaneous
  Country: MX (occurrence: MX)
  Receive Date: 20240227
  Receipt Date: 20240301
  Transmission Date: 20240409
  Serious: Yes (Other)
  Sender: FDA-Public Use
  Company Number: MX-BAYER-2024A030067

PATIENT
  Age: 40 Year
  Sex: Female

DRUGS (2)
  1. FINERENONE [Suspect]
     Active Substance: FINERENONE
     Indication: Glomerulonephritis membranoproliferative
     Dosage: 20 MG, QD
  2. FINERENONE [Suspect]
     Active Substance: FINERENONE
     Indication: Chronic kidney disease

REACTIONS (2)
  - Urine albumin/creatinine ratio decreased [Recovering/Resolving]
  - Off label use [None]
